FAERS Safety Report 6885682-7 (Version None)
Quarter: 2010Q3

REPORT INFORMATION
  Report Type: 
  Country: None (occurrence: None)
  Receive Date: 20100729
  Receipt Date: 20080312
  Transmission Date: 20110219
  Serious: No
  Sender: FDA-Public Use
  Company Number: US-PFIZER INC-2008023767

PATIENT
  Sex: Male
  Weight: 111.36 kg

DRUGS (9)
  1. CELEBREX [Suspect]
     Indication: CARPAL TUNNEL SYNDROME
     Dates: start: 20080201
  2. CELEBREX [Suspect]
     Indication: TENDONITIS
  3. EFFEXOR [Concomitant]
  4. CRESTOR [Concomitant]
  5. CARVEDILOL [Concomitant]
  6. ZETIA [Concomitant]
  7. VITAMINS [Concomitant]
  8. CO-Q-10 [Concomitant]
  9. FISH OIL [Concomitant]

REACTIONS (3)
  - FLUID RETENTION [None]
  - POLLAKIURIA [None]
  - URINE FLOW DECREASED [None]
